FAERS Safety Report 11569565 (Version 1)
Quarter: 2015Q3

REPORT INFORMATION
  Report Type: Spontaneous
  Country: US (occurrence: None)
  Receive Date: 20150928
  Receipt Date: 20150928
  Transmission Date: 20151125
  Serious: No
  Sender: FDA-Public Use
  Company Number: None

PATIENT
  Age: 47 Year
  Sex: Male
  Weight: 100.7 kg

DRUGS (1)
  1. VANCOMYCIN 1GM MYLAN [Suspect]
     Active Substance: VANCOMYCIN
     Indication: OSTEOMYELITIS
     Route: 042
     Dates: start: 20150914, end: 20150914

REACTIONS (2)
  - Pruritus [None]
  - Feeling hot [None]

NARRATIVE: CASE EVENT DATE: 20150914
